FAERS Safety Report 6032679-5 (Version None)
Quarter: 2009Q1

REPORT INFORMATION
  Report Type: 
  Country: None (occurrence: None)
  Receive Date: 20090107
  Receipt Date: 20090107
  Transmission Date: 20090719
  Serious: Yes (Hospitalization)
  Sender: FDA-Public Use
  Company Number: None

PATIENT
  Age: 55 Year
  Sex: Male
  Weight: 74.4 kg

DRUGS (8)
  1. BEVACIZUMAB (GENENTECH, INC.) [Suspect]
     Indication: GLIOBLASTOMA MULTIFORME
     Dosage: 744MG Q 2WKS IV
     Route: 042
     Dates: start: 20080424, end: 20080508
  2. TEMOZOLOMIDE [Suspect]
     Dosage: 385MG QD FOR 5D PO
     Route: 048
     Dates: start: 20080424, end: 20080428
  3. ZOFRAN [Concomitant]
  4. ZETTIA [Concomitant]
  5. LIPITOR [Concomitant]
  6. NORVASC [Concomitant]
  7. DEXAMETHASONE TAB [Concomitant]
  8. DILANTIN [Concomitant]

REACTIONS (1)
  - CONVULSION [None]
